FAERS Safety Report 21458023 (Version 1)
Quarter: 2022Q4

REPORT INFORMATION
  Report Type: Spontaneous
  Country: US (occurrence: US)
  Receive Date: 20221014
  Receipt Date: 20221014
  Transmission Date: 20230112
  Serious: Yes (Hospitalization)
  Sender: FDA-Public Use
  Company Number: US-MYLANLABS-2022M1113641

PATIENT
  Age: 10 Day
  Sex: Male

DRUGS (1)
  1. ALPROSTADIL [Suspect]
     Active Substance: ALPROSTADIL
     Indication: Congenital cardiovascular anomaly
     Dosage: UNK (VIA PERIPHERAL IV LINE INFUSION)
     Route: 042

REACTIONS (2)
  - Urticaria [Recovered/Resolved]
  - Off label use [Unknown]
